FAERS Safety Report 15937361 (Version 2)
Quarter: 2019Q1

REPORT INFORMATION
  Report Type: Spontaneous
  Country: US (occurrence: US)
  Receive Date: 20190208
  Receipt Date: 20190321
  Transmission Date: 20190417
  Serious: No
  Sender: FDA-Public Use
  Company Number: US-BAUSCH-BL-2019-002513

PATIENT
  Sex: Female

DRUGS (2)
  1. LUMIFY [Suspect]
     Active Substance: BRIMONIDINE TARTRATE
     Indication: DRY EYE
     Route: 047
     Dates: start: 201901, end: 201901
  2. LUMIFY [Suspect]
     Active Substance: BRIMONIDINE TARTRATE
     Indication: OCULAR HYPERAEMIA
     Route: 047
     Dates: start: 201901

REACTIONS (4)
  - Eye pain [Unknown]
  - Product quality issue [Unknown]
  - Foreign body sensation in eyes [Unknown]
  - Eye irritation [Unknown]

NARRATIVE: CASE EVENT DATE: 201901
